FAERS Safety Report 17110812 (Version 2)
Quarter: 2019Q4

REPORT INFORMATION
  Report Type: Spontaneous
  Country: RS (occurrence: RS)
  Receive Date: 20191204
  Receipt Date: 20191209
  Transmission Date: 20200122
  Serious: Yes (Other)
  Sender: FDA-Public Use
  Company Number: NVSC2019RS050685

PATIENT
  Age: 67 Year
  Sex: Male

DRUGS (3)
  1. TRAMETINIB [Concomitant]
     Active Substance: TRAMETINIB
     Indication: MALIGNANT MELANOMA
     Dosage: 2 MG, QD
     Route: 065
  2. DABRAFENIB [Concomitant]
     Active Substance: DABRAFENIB
     Indication: MALIGNANT MELANOMA
     Dosage: 75 MG, BID
     Route: 065
  3. ZOLEDRONIC ACID [Suspect]
     Active Substance: ZOLEDRONIC ACID
     Indication: METASTASES TO BONE
     Dosage: 4 MG, QMO
     Route: 042
     Dates: start: 201609

REACTIONS (14)
  - Cortisol decreased [Unknown]
  - Splenic lesion [Unknown]
  - Metastases to bone [Recovering/Resolving]
  - Blood lactate dehydrogenase increased [Unknown]
  - Thyroxine free decreased [Unknown]
  - Blood thyroid stimulating hormone increased [Unknown]
  - Metastases to lymph nodes [Unknown]
  - Malignant melanoma [Unknown]
  - Lymphocytic hypophysitis [Unknown]
  - Metastases to liver [Recovering/Resolving]
  - Malignant neoplasm progression [Unknown]
  - Metastases to peritoneum [Unknown]
  - Pyrexia [Unknown]
  - Fatigue [Unknown]

NARRATIVE: CASE EVENT DATE: 201611
